FAERS Safety Report 11525691 (Version 3)
Quarter: 2016Q2

REPORT INFORMATION
  Report Type: Spontaneous
  Country: CA (occurrence: CA)
  Receive Date: 20150918
  Receipt Date: 20160623
  Transmission Date: 20160815
  Serious: Yes (Other)
  Sender: FDA-Public Use
  Company Number: CA-PFIZER INC-2015034756

PATIENT
  Age: 61 Year
  Sex: Female

DRUGS (2)
  1. XELJANZ [Suspect]
     Active Substance: TOFACITINIB CITRATE
     Dosage: 5 MG, 2X/DAY
     Route: 048
     Dates: end: 20160330
  2. XELJANZ [Suspect]
     Active Substance: TOFACITINIB CITRATE
     Indication: RHEUMATOID ARTHRITIS
     Dosage: 5 MG, 2X/DAY
     Route: 048
     Dates: start: 20140916, end: 201509

REACTIONS (14)
  - Condition aggravated [Recovered/Resolved]
  - Post procedural complication [Unknown]
  - Herpes zoster [Recovered/Resolved]
  - Activities of daily living impaired [Not Recovered/Not Resolved]
  - Laryngitis [Unknown]
  - Treatment noncompliance [Unknown]
  - Dyspnoea [Recovered/Resolved]
  - Weight bearing difficulty [Not Recovered/Not Resolved]
  - Rheumatoid arthritis [Recovered/Resolved]
  - Thrombosis [Unknown]
  - Aphonia [Unknown]
  - Sternitis [Recovered/Resolved]
  - Drug ineffective [Not Recovered/Not Resolved]
  - Back pain [Recovered/Resolved]

NARRATIVE: CASE EVENT DATE: 201412
